FAERS Safety Report 6937420-7 (Version None)
Quarter: 2010Q3

REPORT INFORMATION
  Report Type: 
  Country: None (occurrence: None)
  Receive Date: 20100823
  Receipt Date: 20100816
  Transmission Date: 20110219
  Serious: Yes (Death)
  Sender: FDA-Public Use
  Company Number: US-GILEAD-2010-0031096

PATIENT
  Sex: Female
  Weight: 70.37 kg

DRUGS (18)
  1. LETAIRIS [Suspect]
     Indication: PULMONARY ARTERIAL HYPERTENSION
     Route: 048
     Dates: start: 20100106
  2. REVATIO [Concomitant]
  3. REQUIP [Concomitant]
  4. LASIX [Concomitant]
  5. CAPTOPRIL [Concomitant]
  6. METOPROLOL [Concomitant]
  7. ZOLOFT [Concomitant]
  8. LIPITOR [Concomitant]
  9. LANOXIN [Concomitant]
  10. NASONEX [Concomitant]
  11. GLUCOVANCE [Concomitant]
  12. FENTANYL CITRATE [Concomitant]
  13. PRIMIDONE [Concomitant]
  14. VALIUM [Concomitant]
  15. PERCOCET [Concomitant]
  16. SENNA-C [Concomitant]
  17. PRILOSEC [Concomitant]
  18. VITAMIN D [Concomitant]

REACTIONS (1)
  - DEATH [None]
